FAERS Safety Report 8152632-5 (Version None)
Quarter: 2012Q1

REPORT INFORMATION
  Report Type: 
  Country: None (occurrence: None)
  Receive Date: 20120216
  Receipt Date: 20120216
  Transmission Date: 20120608
  Serious: Yes (Life-Threatening, Hospitalization)
  Sender: FDA-Public Use
  Company Number: None

PATIENT
  Sex: Female
  Weight: 73.2 kg

DRUGS (7)
  1. BRIMONIDINE TARTRATE [Concomitant]
  2. JINTELI [Concomitant]
  3. CITALOPRAM HYDROBROMIDE [Concomitant]
  4. ALPRAZOLAM [Concomitant]
  5. TIMOLOL HEMIHYDRATE [Concomitant]
  6. SYNVISC-ONE [Suspect]
     Indication: OSTEOARTHRITIS
     Dosage: ONE SYRINGE (48MG/6ML) ONCE INTRA-ARTICULAR
     Route: 014
     Dates: start: 20120111
  7. SUMATRIPTAN [Concomitant]

REACTIONS (14)
  - JOINT RANGE OF MOTION DECREASED [None]
  - HYPONATRAEMIA [None]
  - NAUSEA [None]
  - ARTHRALGIA [None]
  - JOINT EFFUSION [None]
  - LEUKOCYTOSIS [None]
  - CONFUSIONAL STATE [None]
  - SKIN MASS [None]
  - VIRAL TEST POSITIVE [None]
  - JOINT SWELLING [None]
  - REPETITIVE SPEECH [None]
  - TENDERNESS [None]
  - ABDOMINAL PAIN [None]
  - INTERSTITIAL GRANULOMATOUS DERMATITIS [None]
